FAERS Safety Report 8174079-8 (Version None)
Quarter: 2012Q1

REPORT INFORMATION
  Report Type: 
  Country: None (occurrence: None)
  Receive Date: 20120227
  Receipt Date: 20120213
  Transmission Date: 20120608
  Serious: Yes (Life-Threatening, Hospitalization)
  Sender: FDA-Public Use
  Company Number: 2012MA002026

PATIENT
  Age: 58 Year
  Sex: Male
  Weight: 90 kg

DRUGS (8)
  1. METOCLOPRAMIDE HYDROCHLORIDE [Suspect]
     Indication: IMPAIRED GASTRIC EMPTYING
     Dosage: 10 MG;BID;PO
     Route: 048
  2. NEBIVOLOL [Concomitant]
  3. VENLAFAXINE [Concomitant]
  4. CLINDAMYCIN [Concomitant]
  5. VALSARTAN [Concomitant]
  6. MESALAMINE [Concomitant]
  7. SERTRALINE HYDROCHLORIDE [Concomitant]
  8. RABEPRAZOLE SODIUM [Concomitant]

REACTIONS (19)
  - OXYGEN SATURATION DECREASED [None]
  - HAEMOGLOBIN DECREASED [None]
  - CEREBRAL ISCHAEMIA [None]
  - QRS AXIS ABNORMAL [None]
  - HAEMATOCRIT DECREASED [None]
  - BUNDLE BRANCH BLOCK LEFT [None]
  - OVERDOSE [None]
  - DYSARTHRIA [None]
  - RENAL FAILURE ACUTE [None]
  - CEREBRAL DISORDER [None]
  - BLOOD ALCOHOL INCREASED [None]
  - TELANGIECTASIA [None]
  - CLOSTRIDIUM DIFFICILE COLITIS [None]
  - NEUROLEPTIC MALIGNANT SYNDROME [None]
  - MENTAL STATUS CHANGES [None]
  - LETHARGY [None]
  - METABOLIC ACIDOSIS [None]
  - DELUSION [None]
  - SEROTONIN SYNDROME [None]
